FAERS Safety Report 5763483-0 (Version None)
Quarter: 2008Q2

REPORT INFORMATION
  Report Type: 
  Country: None (occurrence: None)
  Receive Date: 20080529
  Receipt Date: 20080123
  Transmission Date: 20081010
  Serious: Yes (Disabling, Other)
  Sender: FDA-Public Use
  Company Number: CIP07001592

PATIENT
  Age: 51 Year
  Sex: Female

DRUGS (1)
  1. ACTONEL [Suspect]
     Indication: OSTEOPENIA
     Dosage: 35 MG, 1 ONLY, ORAL
     Route: 048
     Dates: start: 20060605, end: 20060605

REACTIONS (16)
  - ARTHRALGIA [None]
  - BACK PAIN [None]
  - BONE PAIN [None]
  - CHEST DISCOMFORT [None]
  - CHEST PAIN [None]
  - DISCOMFORT [None]
  - EYE INFECTION [None]
  - EYE PAIN [None]
  - FEELING ABNORMAL [None]
  - FEELING HOT [None]
  - MOBILITY DECREASED [None]
  - MYALGIA [None]
  - OCULAR HYPERAEMIA [None]
  - PAIN [None]
  - PAINFUL RESPIRATION [None]
  - PARAESTHESIA [None]
